FAERS Safety Report 4707249-9 (Version None)
Quarter: 2005Q3

REPORT INFORMATION
  Report Type: 
  Country: None (occurrence: None)
  Receive Date: 20050701
  Receipt Date: 20050615
  Transmission Date: 20060218
  Serious: Yes (Other)
  Sender: FDA-Public Use
  Company Number: DE-2005-010779

PATIENT
  Age: 49 Year
  Sex: Female

DRUGS (1)
  1. BETASERON [Suspect]
     Dates: start: 20050223, end: 20050606

REACTIONS (2)
  - BLOOD ALKALINE PHOSPHATASE INCREASED [None]
  - RED BLOOD CELL COUNT DECREASED [None]
